FAERS Safety Report 19736440 (Version 3)
Quarter: 2021Q3

REPORT INFORMATION
  Report Type: Spontaneous
  Country: RO (occurrence: RO)
  Receive Date: 20210824
  Receipt Date: 20210909
  Transmission Date: 20211014
  Serious: Yes (Other)
  Sender: FDA-Public Use
  Company Number: RO-AUROBINDO-AUR-APL-2021-035346

PATIENT
  Age: 71 Year
  Sex: Female

DRUGS (3)
  1. CLARITHROMYCIN. [Suspect]
     Active Substance: CLARITHROMYCIN
     Indication: ATYPICAL PNEUMONIA
     Dosage: 1000 MILLIGRAM, ONCE A DAY (DIVIDED IN TWO DOSES)
     Route: 048
  2. KLABAX [Suspect]
     Active Substance: CLARITHROMYCIN
     Indication: DRUG PROVOCATION TEST
     Dosage: UNK
     Route: 065
  3. CLARITHROMYCIN. [Suspect]
     Active Substance: CLARITHROMYCIN
     Indication: ATYPICAL PNEUMONIA

REACTIONS (3)
  - Symmetrical drug-related intertriginous and flexural exanthema [Recovered/Resolved]
  - Rash pruritic [Recovered/Resolved]
  - Diarrhoea [Unknown]
